FAERS Safety Report 6779113-5 (Version None)
Quarter: 2010Q2

REPORT INFORMATION
  Report Type: 
  Country: None (occurrence: None)
  Receive Date: 20100618
  Receipt Date: 20100514
  Transmission Date: 20101027
  Serious: No
  Sender: FDA-Public Use
  Company Number: US-JNJFOC-20100506548

PATIENT
  Sex: Male

DRUGS (3)
  1. INVEGA SUSTENNA [Suspect]
     Indication: SCHIZOPHRENIA
     Route: 030
  2. RISPERDAL CONSTA [Concomitant]
     Indication: SCHIZOPHRENIA
     Route: 030
  3. TRILAFON [Concomitant]
     Route: 048

REACTIONS (2)
  - HYPERHIDROSIS [None]
  - NERVOUSNESS [None]
